FAERS Safety Report 18562845 (Version 1)
Quarter: 2020Q4

REPORT INFORMATION
  Report Type: Spontaneous
  Country: US (occurrence: US)
  Receive Date: 20201130
  Receipt Date: 20201130
  Transmission Date: 20210114
  Serious: No
  Sender: FDA-Public Use
  Company Number: US-ROCHE-2685414

PATIENT
  Sex: Male
  Weight: 72.64 kg

DRUGS (5)
  1. COLAZAL [Concomitant]
     Active Substance: BALSALAZIDE DISODIUM
     Indication: COLITIS ULCERATIVE
     Route: 048
  2. ATORVASTATIN [Concomitant]
     Active Substance: ATORVASTATIN
     Indication: HYPERCHOLESTEROLAEMIA
  3. LATANOPROST. [Concomitant]
     Active Substance: LATANOPROST
     Indication: GLAUCOMA
  4. LUCENTIS [Suspect]
     Active Substance: RANIBIZUMAB
     Indication: RETINAL VEIN OCCLUSION
     Dosage: ONGOING: UNKNOWN  (THE FIRST TWO DOSES WERE ADMINISTERED MONTHLY, THEN EVERY OTHER MONTH)
     Route: 031
     Dates: start: 20200101
  5. DORZOLAMIDE [Concomitant]
     Active Substance: DORZOLAMIDE
     Indication: GLAUCOMA
     Dosage: 1 DROP IN THE RIGHT EYE; ONGOING:YES

REACTIONS (3)
  - Off label use [Unknown]
  - Intentional product misuse [Unknown]
  - Injection site pain [Unknown]
